FAERS Safety Report 20245226 (Version 1)
Quarter: 2021Q4

REPORT INFORMATION
  Report Type: Spontaneous
  Country: US (occurrence: US)
  Receive Date: 20211229
  Receipt Date: 20211229
  Transmission Date: 20220303
  Serious: Yes (Hospitalization)
  Sender: FDA-Public Use
  Company Number: US-PFIZER INC-202101806338

PATIENT
  Age: 64 Year
  Sex: Female
  Weight: 74.39 kg

DRUGS (1)
  1. AROMASIN [Suspect]
     Active Substance: EXEMESTANE
     Indication: Breast cancer female
     Dosage: 25 MG, 1X/DAY
     Route: 048

REACTIONS (4)
  - COVID-19 [Recovered/Resolved]
  - Fatigue [Unknown]
  - Headache [Unknown]
  - Eye disorder [Unknown]

NARRATIVE: CASE EVENT DATE: 20210101
